FAERS Safety Report 5219362-0 (Version None)
Quarter: 2007Q1

REPORT INFORMATION
  Report Type: 
  Country: None (occurrence: None)
  Receive Date: 20061201
  Receipt Date: 20060723
  Transmission Date: 20070707
  Serious: No
  Sender: FDA-Public Use
  Company Number: 2006PV018069

PATIENT
  Age: 45 Year
  Sex: Female
  Weight: 111.1313 kg

DRUGS (6)
  1. BYETTA [Suspect]
     Indication: DIABETES MELLITUS NON-INSULIN-DEPENDENT
     Dosage: 5 MCG;BID;SC
     Route: 058
     Dates: start: 20060722
  2. ACTOS [Concomitant]
  3. GLIMEPIRIDE [Concomitant]
  4. THYROID TAB [Concomitant]
  5. VITAMIN B COMPLEX WITH [Concomitant]
  6. PAIN PILLS [Concomitant]

REACTIONS (5)
  - FATIGUE [None]
  - FEELING ABNORMAL [None]
  - FEELING COLD [None]
  - PERIPHERAL COLDNESS [None]
  - SINUSITIS [None]
